FAERS Safety Report 17130500 (Version 1)
Quarter: 2019Q4

REPORT INFORMATION
  Report Type: Spontaneous
  Country: CA (occurrence: CA)
  Receive Date: 20191209
  Receipt Date: 20191209
  Transmission Date: 20200122
  Serious: Yes (Other)
  Sender: FDA-Public Use
  Company Number: CA-B.BRAUN MEDICAL INC.-2077626

PATIENT
  Sex: Female

DRUGS (3)
  1. SODIUM CHLORIDE INJECTION USP 0264-7800-09 [Suspect]
     Active Substance: SODIUM CHLORIDE
     Indication: PRODUCT USED FOR UNKNOWN INDICATION
     Route: 042
  2. POVIDONE-IODINE. [Suspect]
     Active Substance: POVIDONE-IODINE
  3. CEFAZOLIN SODIUM. [Suspect]
     Active Substance: CEFAZOLIN SODIUM
     Route: 042

REACTIONS (3)
  - Normal newborn [None]
  - Maternal exposure during pregnancy [None]
  - Amniotic cavity infection [None]
